FAERS Safety Report 9630878 (Version 4)
Quarter: 2014Q1

REPORT INFORMATION
  Report Type: Spontaneous
  Country: JP (occurrence: JP)
  Receive Date: 20131018
  Receipt Date: 20140127
  Transmission Date: 20141002
  Serious: Yes (Death, Hospitalization)
  Sender: FDA-Public Use
  Company Number: JP-OTSUKA-JP-2013-14452

PATIENT
  Age: 85 Year
  Sex: Female

DRUGS (6)
  1. SAMSCA [Suspect]
     Indication: OEDEMA DUE TO HEPATIC DISEASE
     Dosage: 3.75 MG MILLIGRAM(S), QD
     Route: 048
     Dates: start: 20131009, end: 20131010
  2. AMINOLEBAN EN [Concomitant]
     Indication: HEPATIC CIRRHOSIS
     Dosage: 1 DF DOSAGE FORM, QD
     Route: 048
     Dates: end: 20131023
  3. AMLODIN [Concomitant]
     Indication: HYPERTENSION
     Dosage: 2.5 MG MILLIGRAM(S), QD
     Route: 048
  4. MICARDIS [Concomitant]
     Indication: HYPERTENSION
     Dosage: 40 MG MILLIGRAM(S), QD
     Route: 048
  5. SELARA [Concomitant]
     Indication: HYPERTENSION
     Dosage: 25 MG MILLIGRAM(S), QD
     Route: 048
  6. LASIX [Concomitant]
     Indication: OEDEMA DUE TO HEPATIC DISEASE
     Dosage: 20 MG MILLIGRAM(S), QD
     Route: 048

REACTIONS (4)
  - Rhabdomyolysis [Recovered/Resolved]
  - Liver disorder [Recovered/Resolved]
  - Pyrexia [Unknown]
  - Hepatic cirrhosis [Fatal]
